FAERS Safety Report 5390183-1 (Version None)
Quarter: 2007Q3

REPORT INFORMATION
  Report Type: 
  Country: None (occurrence: None)
  Receive Date: 20070716
  Receipt Date: 20070716
  Transmission Date: 20080115
  Serious: Yes (Hospitalization)
  Sender: FDA-Public Use
  Company Number: None

PATIENT
  Sex: Female
  Weight: 24 kg

DRUGS (2)
  1. CYTARABINE [Suspect]
     Dosage: 7030 MG
  2. MITOXANTRONE HCL [Suspect]
     Dosage: 40 MG

REACTIONS (41)
  - ABDOMINAL DISTENSION [None]
  - ABDOMINAL PAIN [None]
  - ABDOMINAL PAIN UPPER [None]
  - ASPERGILLOSIS [None]
  - BLOOD CALCIUM DECREASED [None]
  - BLOOD FIBRINOGEN INCREASED [None]
  - BREATH SOUNDS ABSENT [None]
  - BRONCHOPULMONARY ASPERGILLOSIS [None]
  - FLANK PAIN [None]
  - FLUID OVERLOAD [None]
  - FUNGAL INFECTION [None]
  - HAEMATOMA [None]
  - HAEMATURIA [None]
  - HEPATOMEGALY [None]
  - HYPOALBUMINAEMIA [None]
  - INFLAMMATION [None]
  - KIDNEY ENLARGEMENT [None]
  - LABORATORY TEST ABNORMAL [None]
  - LIVER ABSCESS [None]
  - LUNG NEOPLASM [None]
  - MALNUTRITION [None]
  - NEUTROPENIA [None]
  - NEUTROPHIL COUNT DECREASED [None]
  - OXYGEN SATURATION DECREASED [None]
  - PANCYTOPENIA [None]
  - PLEURAL EFFUSION [None]
  - PSOAS SIGN [None]
  - PYELONEPHRITIS [None]
  - PYREXIA [None]
  - RASH MACULO-PAPULAR [None]
  - RENAL EMBOLISM [None]
  - RENAL INFARCT [None]
  - RENAL NECROSIS [None]
  - RENAL VEIN EMBOLISM [None]
  - SINUSITIS [None]
  - SPLENOMEGALY [None]
  - SYSTEMIC MYCOSIS [None]
  - TACHYCARDIA [None]
  - TACHYPNOEA [None]
  - URINARY TRACT OBSTRUCTION [None]
  - WHITE BLOOD CELL COUNT DECREASED [None]
